FAERS Safety Report 11441550 (Version 2)
Quarter: 2016Q2

REPORT INFORMATION
  Report Type: Spontaneous
  Country: US (occurrence: US)
  Receive Date: 20150901
  Receipt Date: 20160407
  Transmission Date: 20160815
  Serious: Yes (Other)
  Sender: FDA-Public Use
  Company Number: US-BAYER-2015-408066

PATIENT
  Age: 38 Year
  Sex: Female

DRUGS (2)
  1. MIRENA [Suspect]
     Active Substance: LEVONORGESTREL
     Indication: UTERINE POLYP
     Dosage: 20 MCG/24HR, CONT
     Route: 015
     Dates: start: 201412
  2. MIRENA [Suspect]
     Active Substance: LEVONORGESTREL
     Indication: CONTRACEPTION

REACTIONS (23)
  - Pain [Not Recovered/Not Resolved]
  - Menorrhagia [Not Recovered/Not Resolved]
  - Nausea [None]
  - Uterine haemorrhage [None]
  - Metrorrhagia [None]
  - Cervical cyst [None]
  - Weight increased [None]
  - Adverse event [None]
  - Headache [None]
  - Uterine leiomyoma [None]
  - Affective disorder [None]
  - Abdominal pain [Not Recovered/Not Resolved]
  - Feeling abnormal [None]
  - Device dislocation [Not Recovered/Not Resolved]
  - Post procedural discomfort [Not Recovered/Not Resolved]
  - Vaginal discharge [None]
  - Loss of libido [None]
  - Abdominal distension [None]
  - Fatigue [None]
  - Condition aggravated [None]
  - Abdominal pain upper [Not Recovered/Not Resolved]
  - Inflammation [None]
  - Frustration tolerance decreased [None]

NARRATIVE: CASE EVENT DATE: 201501
